FAERS Safety Report 9887758 (Version 2)
Quarter: 2014Q1

REPORT INFORMATION
  Report Type: Spontaneous
  Country: US (occurrence: US)
  Receive Date: 20140211
  Receipt Date: 20140328
  Transmission Date: 20141002
  Serious: No
  Sender: FDA-Public Use
  Company Number: US-UCBSA-111575

PATIENT
  Age: 23 Year
  Sex: Female
  Weight: 126 kg

DRUGS (7)
  1. CIMZIA [Suspect]
     Indication: CROHN^S DISEASE
     Dosage: SYRINGE
     Dates: start: 20131230
  2. CIMZIA [Suspect]
     Indication: CROHN^S DISEASE
     Dosage: TAKING FOR 2 YEARS
     Route: 058
  3. OXYCODONE [Concomitant]
     Indication: ABDOMINAL PAIN
     Dosage: 5/325MG, 10/650MG DAILY DOSE
     Route: 048
  4. OXYCODONE [Concomitant]
     Indication: BACK PAIN
     Dosage: 5/325MG, 10/650MG DAILY DOSE
     Route: 048
  5. ZOFRAN [Concomitant]
     Indication: NAUSEA
     Route: 048
  6. XANAFLEX [Concomitant]
     Indication: MUSCLE RELAXANT DRUG LEVEL
     Route: 048
  7. MOBIC [Concomitant]
     Indication: PAIN
     Route: 048

REACTIONS (9)
  - Kidney infection [Unknown]
  - Urinary tract infection [Recovered/Resolved]
  - Back pain [Recovered/Resolved]
  - Dysuria [Recovered/Resolved]
  - Dyschezia [Recovered/Resolved]
  - Rectal haemorrhage [Not Recovered/Not Resolved]
  - Abdominal pain [Not Recovered/Not Resolved]
  - Nausea [Not Recovered/Not Resolved]
  - Vomiting [Not Recovered/Not Resolved]
